APPROVED DRUG PRODUCT: NEFFY
Active Ingredient: EPINEPHRINE
Strength: 1MG/SPRAY
Dosage Form/Route: SPRAY;NASAL
Application: N214697 | Product #002
Applicant: ARS PHARMACEUTICALS OPERATIONS INC
Approved: Mar 5, 2025 | RLD: Yes | RS: Yes | Type: RX

PATENTS:
Patent 11918655 | Expires: Feb 6, 2039
Patent 11744895 | Expires: Feb 6, 2039
Patent 11717571 | Expires: Feb 6, 2039
Patent 11191838 | Expires: Feb 6, 2039
Patent 11173209 | Expires: Feb 6, 2038
Patent 10682414 | Expires: Feb 6, 2039
Patent 12324838 | Expires: Feb 6, 2039
Patent 10576156 | Expires: Feb 6, 2038